FAERS Safety Report 8345694 (Version 2)
Quarter: 2012Q4

REPORT INFORMATION
  Report Type: Spontaneous
  Country: US (occurrence: None)
  Receive Date: 20111209
  Receipt Date: 20120608
  Transmission Date: 20130627
  Serious: No
  Sender: FDA-Public Use
  Company Number: TH-2011-00327

PATIENT
  Sex: Female

DRUGS (1)
  1. EGRIFTA [Suspect]
     Indication: LIPODYSTROPHY ACQUIRED
     Dosage: 1 IN 1 D, SUBCUTANEOUS
     Route: 058
     Dates: start: 201108, end: 201112

REACTIONS (3)
  - Thyroid disorder [None]
  - Mood swings [None]
  - Neuropathy peripheral [None]
